FAERS Safety Report 5135683-4 (Version None)
Quarter: 2006Q4

REPORT INFORMATION
  Report Type: 
  Country: None (occurrence: None)
  Receive Date: 20061024
  Receipt Date: 20061024
  Transmission Date: 20070319
  Serious: Yes (Other)
  Sender: FDA-Public Use
  Company Number: None

PATIENT
  Age: 59 Year
  Sex: Female
  Weight: 98.4 kg

DRUGS (8)
  1. NIACIN [Suspect]
     Indication: HYPERLIPIDAEMIA
     Dosage: 500 MG PO
     Route: 048
     Dates: start: 20061002
  2. EFFEXOR [Concomitant]
  3. FLUTIICASONE NASAL SPRAY [Concomitant]
  4. CALCIUM CARBONATE [Concomitant]
  5. ASPIRIN [Concomitant]
  6. MULTI-VITAMINS [Concomitant]
  7. CETIRIZINE HCL [Concomitant]
  8. VITAMIN D [Concomitant]

REACTIONS (3)
  - FLUSHING [None]
  - NAUSEA [None]
  - PARAESTHESIA [None]
